FAERS Safety Report 17523919 (Version 2)
Quarter: 2020Q1

REPORT INFORMATION
  Report Type: Spontaneous
  Country: US (occurrence: US)
  Receive Date: 20200311
  Receipt Date: 20200320
  Transmission Date: 20200409
  Serious: Yes (Life-Threatening, Hospitalization, Other)
  Sender: FDA-Public Use
  Company Number: US-AUROBINDO-AUR-APL-2020-011672

PATIENT
  Age: 23 Year
  Sex: Female

DRUGS (2)
  1. LOPERAMIDE HYDROCHLORIDE TABLETS USP (OTC) [Suspect]
     Active Substance: LOPERAMIDE HYDROCHLORIDE
     Dosage: 80 DOSAGE FORM
     Route: 048
  2. LOPERAMIDE HYDROCHLORIDE TABLETS USP (OTC) [Suspect]
     Active Substance: LOPERAMIDE HYDROCHLORIDE
     Indication: SUBSTANCE USE
     Dosage: UNK
     Route: 048

REACTIONS (10)
  - Torsade de pointes [Recovered/Resolved]
  - Stress cardiomyopathy [Recovered/Resolved]
  - Toxicity to various agents [Recovered/Resolved]
  - Cardiac arrest [Recovered/Resolved]
  - Ventricular fibrillation [Recovered/Resolved]
  - Ventricular hypokinesia [Recovered/Resolved]
  - Ejection fraction decreased [Recovered/Resolved]
  - Cardiogenic shock [Recovered/Resolved]
  - Intentional overdose [Recovered/Resolved]
  - Drug abuse [Recovered/Resolved]
